FAERS Safety Report 15602289 (Version 2)
Quarter: 2018Q4

REPORT INFORMATION
  Report Type: Spontaneous
  Country: US (occurrence: US)
  Receive Date: 20181109
  Receipt Date: 20181208
  Transmission Date: 20190205
  Serious: No
  Sender: FDA-Public Use
  Company Number: US-JNJFOC-20181037997

PATIENT
  Age: 34 Year
  Sex: Female
  Weight: 81.65 kg

DRUGS (15)
  1. BUSPAR [Concomitant]
     Active Substance: BUSPIRONE HYDROCHLORIDE
     Indication: ANXIETY
     Route: 065
  2. DOCUSATE SODIUM. [Concomitant]
     Active Substance: DOCUSATE SODIUM
     Indication: CONSTIPATION
     Route: 065
     Dates: start: 20180926
  3. OLANZAPINE. [Concomitant]
     Active Substance: OLANZAPINE
     Route: 065
     Dates: start: 20180426
  4. GABAPENTIN. [Concomitant]
     Active Substance: GABAPENTIN
     Indication: FIBROMYALGIA
     Route: 065
     Dates: start: 20180923
  5. BUPROPION. [Concomitant]
     Active Substance: BUPROPION
     Indication: DEPRESSION
     Route: 065
     Dates: start: 20180904
  6. HYDROXYZINE PAMOATE. [Concomitant]
     Active Substance: HYDROXYZINE PAMOATE
     Indication: ANXIETY
     Dosage: 1 OR 2 PER NIGHT
     Route: 065
     Dates: start: 20180827
  7. HYDROXYZINE PAMOATE. [Concomitant]
     Active Substance: HYDROXYZINE PAMOATE
     Indication: TENSION
     Dosage: 1 OR 2 PER NIGHT
     Route: 065
     Dates: start: 20180827
  8. VALACYCLOVIR [Concomitant]
     Active Substance: VALACYCLOVIR HYDROCHLORIDE
     Indication: VIRAL INFECTION
     Route: 065
     Dates: start: 20180906
  9. DISULFIRAM. [Concomitant]
     Active Substance: DISULFIRAM
     Route: 065
     Dates: start: 20180802
  10. SENNA [Concomitant]
     Active Substance: SENNA LEAF\SENNOSIDES\SENNOSIDES A AND B
     Dosage: 1 TABLET MORNING AND EVENING
     Route: 065
     Dates: start: 20180330
  11. TETRACYCLINE [Concomitant]
     Active Substance: TETRACYCLINE
     Indication: SKIN DISORDER
     Route: 065
     Dates: start: 20180902
  12. TOPIRAMATE. [Concomitant]
     Active Substance: TOPIRAMATE
     Indication: EPILEPSY
     Route: 048
     Dates: start: 20180904
  13. CLINDAMYCIN. [Concomitant]
     Active Substance: CLINDAMYCIN
     Indication: SKIN DISORDER
     Dosage: 1%????EVERY MORNING
     Route: 061
     Dates: start: 20180924
  14. TRAZODONE [Concomitant]
     Active Substance: TRAZODONE HYDROCHLORIDE
     Indication: SLEEP DISORDER THERAPY
     Dosage: 1-2 PER NIGHT
     Route: 065
     Dates: start: 20180907
  15. INVEGA [Suspect]
     Active Substance: PALIPERIDONE
     Indication: BIPOLAR DISORDER
     Route: 048
     Dates: start: 201804, end: 201804

REACTIONS (1)
  - Refusal of treatment by patient [Unknown]

NARRATIVE: CASE EVENT DATE: 201804
